FAERS Safety Report 7970415-3 (Version None)
Quarter: 2011Q4

REPORT INFORMATION
  Report Type: 
  Country: None (occurrence: None)
  Receive Date: 20111212
  Receipt Date: 20111208
  Transmission Date: 20120403
  Serious: No
  Sender: FDA-Public Use
  Company Number: PHEH2011US011258

PATIENT

DRUGS (3)
  1. TRAMADOL HCL [Concomitant]
     Dosage: UNK UKN, UNK
  2. COUMADIN [Concomitant]
     Dosage: UNK UKN, UNK
  3. TASIGNA [Suspect]
     Dosage: UNK UKN, UNK

REACTIONS (2)
  - BACK PAIN [None]
  - DRUG INTERACTION [None]
